FAERS Safety Report 12637332 (Version 1)
Quarter: 2016Q3

REPORT INFORMATION
  Report Type: Spontaneous
  Country: US (occurrence: US)
  Receive Date: 20160809
  Receipt Date: 20160809
  Transmission Date: 20161109
  Serious: No
  Sender: FDA-Public Use
  Company Number: US-BEH-2015056688

PATIENT
  Age: 69 Year
  Sex: Male
  Weight: 94 kg

DRUGS (23)
  1. PRIVIGEN [Suspect]
     Active Substance: HUMAN IMMUNOGLOBULIN G
     Indication: NEUROMYOPATHY
     Dosage: DAILY X 5 DAYS
     Route: 042
     Dates: start: 20151106, end: 20151124
  2. AXIRON [Concomitant]
     Active Substance: TESTOSTERONE
     Dosage: 30MG/1.5ML SOL MD PMP
  3. CELEBREX [Concomitant]
     Active Substance: CELECOXIB
  4. PULMICORT FLEXHALER [Concomitant]
     Active Substance: BUDESONIDE
  5. DILTIAZEM. [Concomitant]
     Active Substance: DILTIAZEM
     Dosage: 24 HR CD CAP.SR 24HR
  6. PREVACID [Concomitant]
     Active Substance: LANSOPRAZOLE
     Dosage: DR
  7. ACETAMINOPHEN. [Concomitant]
     Active Substance: ACETAMINOPHEN
  8. VITAMIN D [Concomitant]
     Active Substance: CHOLECALCIFEROL
  9. NORMAL SALINE [Concomitant]
     Active Substance: SODIUM CHLORIDE
  10. SODIUM CHLORIDE. [Concomitant]
     Active Substance: SODIUM CHLORIDE
  11. EPI-PEN AUTOINJECTOR [Concomitant]
  12. ALPHAGAN P [Concomitant]
     Active Substance: BRIMONIDINE TARTRATE
     Dosage: DROPS
  13. VENTOLIN HFA [Concomitant]
     Active Substance: ALBUTEROL SULFATE
     Dosage: HFA AER AD
  14. HYDROCHLOROTHIAZIDE. [Concomitant]
     Active Substance: HYDROCHLOROTHIAZIDE
  15. DIPHENHYDRAMINE. [Concomitant]
     Active Substance: DIPHENHYDRAMINE
  16. HEPARIN [Concomitant]
     Active Substance: HEPARIN SODIUM
     Dosage: 10 UNITS/ML
  17. DETROL [Concomitant]
     Active Substance: TOLTERODINE TARTRATE
  18. SYNTHROID [Concomitant]
     Active Substance: LEVOTHYROXINE SODIUM
  19. ASPIRIN. [Concomitant]
     Active Substance: ASPIRIN
  20. LIDOCAINE. [Concomitant]
     Active Substance: LIDOCAINE
  21. SINGULAIR [Concomitant]
     Active Substance: MONTELUKAST SODIUM
  22. XALATAN [Concomitant]
     Active Substance: LATANOPROST
     Dosage: DROPS
  23. FLOMAX [Concomitant]
     Active Substance: TAMSULOSIN HYDROCHLORIDE
     Dosage: CAP. SR 24H

REACTIONS (6)
  - Chills [Unknown]
  - Musculoskeletal stiffness [Unknown]
  - Vomiting [Unknown]
  - Headache [Recovered/Resolved]
  - Headache [Unknown]
  - Pyrexia [Unknown]

NARRATIVE: CASE EVENT DATE: 20151110
